FAERS Safety Report 10020833 (Version 3)
Quarter: 2014Q1

REPORT INFORMATION
  Report Type: Spontaneous
  Country: IL (occurrence: None)
  Receive Date: 20131204
  Receipt Date: 20140102
  Transmission Date: 20141002
  Serious: Yes (Death, Hospitalization)
  Sender: FDA-Public Use
  Company Number: UTC-041234

PATIENT
  Age: 57 Year
  Sex: Female

DRUGS (1)
  1. REMODULIN [Suspect]
     Indication: PULMONARY ARTERIAL HYPERTENSION
     Route: 058
     Dates: start: 2008

REACTIONS (8)
  - Malaise [None]
  - Post procedural complication [None]
  - Pulmonary embolism [None]
  - Fall [None]
  - Patella fracture [None]
  - Renal failure [None]
  - Haemodialysis [None]
  - Hip fracture [None]
